FAERS Safety Report 4540597-4 (Version None)
Quarter: 2004Q4

REPORT INFORMATION
  Report Type: 
  Country: None (occurrence: None)
  Receive Date: 20041229
  Receipt Date: 20041222
  Transmission Date: 20050328
  Serious: Yes (Death, Hospitalization)
  Sender: FDA-Public Use
  Company Number: PHBS2004CA17183

PATIENT
  Age: 74 Year
  Sex: Male

DRUGS (1)
  1. SANDOSTATIN [Suspect]
     Indication: PANCREATIC CARCINOMA
     Dosage: UNK, UNK
     Route: 065

REACTIONS (5)
  - DEHYDRATION [None]
  - HYPOTENSION [None]
  - INTESTINAL ISCHAEMIA [None]
  - MUCOSAL INFLAMMATION [None]
  - PANCREATIC CARCINOMA [None]
